FAERS Safety Report 17142871 (Version 1)
Quarter: 2019Q4

REPORT INFORMATION
  Report Type: Spontaneous
  Country: US (occurrence: US)
  Receive Date: 20191211
  Receipt Date: 20191211
  Transmission Date: 20200122
  Serious: Yes (Death, Other)
  Sender: FDA-Public Use
  Company Number: NVSC2019US064811

PATIENT
  Age: 63 Year
  Sex: Female

DRUGS (2)
  1. IBUPROFEN. [Suspect]
     Active Substance: IBUPROFEN
     Indication: PRODUCT USED FOR UNKNOWN INDICATION
     Dosage: UNK
     Route: 065
  2. ACETAMINOPHEN (PARACETAMOL) [Suspect]
     Active Substance: ACETAMINOPHEN
     Indication: PRODUCT USED FOR UNKNOWN INDICATION
     Dosage: UNK
     Route: 065

REACTIONS (11)
  - Brain death [Fatal]
  - Acute kidney injury [Unknown]
  - Nervous system disorder [Unknown]
  - Metabolic acidosis [Unknown]
  - Anion gap [Unknown]
  - Acute lung injury [Unknown]
  - Respiratory depression [Unknown]
  - Haemolysis [Unknown]
  - Coagulopathy [Unknown]
  - Toxicity to various agents [Fatal]
  - Hepatotoxicity [Unknown]
